FAERS Safety Report 6266649-9 (Version None)
Quarter: 2009Q3

REPORT INFORMATION
  Report Type: 
  Country: None (occurrence: None)
  Receive Date: 20090710
  Receipt Date: 20090625
  Transmission Date: 20100115
  Serious: Yes (Other)
  Sender: FDA-Public Use
  Company Number: US-1170104

PATIENT
  Age: 81 Year
  Sex: Female

DRUGS (5)
  1. OMNIPRED [Suspect]
     Indication: PROPHYLAXIS
     Dosage: (1 GTT OD QID OPHTHALMIC)
     Route: 047
     Dates: start: 20090330, end: 20090521
  2. OMNIPRED [Suspect]
     Indication: PROPHYLAXIS
     Dosage: (1 GTT OD QID OPHTHALMIC)
     Route: 047
     Dates: start: 20090521, end: 20090615
  3. NEVANAC [Suspect]
     Indication: PROPHYLAXIS
     Dosage: (1 GTT OD QID OPHTHALMIC)
     Route: 047
     Dates: start: 20090330, end: 20090521
  4. NEVANAC [Suspect]
     Indication: PROPHYLAXIS
     Dosage: (1 GTT OD QID OPHTHALMIC)
     Route: 047
     Dates: start: 20090521, end: 20090615
  5. METOPROLOL SUCCINATE [Concomitant]

REACTIONS (5)
  - BLOOD PRESSURE INCREASED [None]
  - EPISTAXIS [None]
  - HEADACHE [None]
  - MUCOSAL DRYNESS [None]
  - VASCULAR INJURY [None]
